FAERS Safety Report 6819775-7 (Version None)
Quarter: 2010Q3

REPORT INFORMATION
  Report Type: 
  Country: None (occurrence: None)
  Receive Date: 20100707
  Receipt Date: 20100623
  Transmission Date: 20110219
  Serious: Yes (Death, Hospitalization)
  Sender: FDA-Public Use
  Company Number: PHHY2010JP30957

PATIENT
  Age: 58 Year
  Sex: Female

DRUGS (4)
  1. AFINITOR [Suspect]
     Indication: METASTATIC RENAL CELL CARCINOMA
     Dosage: 10MG DAILY
     Route: 048
     Dates: start: 20100422, end: 20100502
  2. NEXAVAR [Suspect]
     Indication: METASTATIC RENAL CELL CARCINOMA
     Dosage: 800MG DAILY
     Route: 048
     Dates: start: 20080717, end: 20100422
  3. NEXAVAR [Suspect]
     Dosage: 800 MG
     Route: 048
     Dates: start: 20080424, end: 20100421
  4. UFT [Concomitant]
     Indication: RENAL CELL CARCINOMA
     Dosage: 300 MG
     Route: 048
     Dates: start: 20071201, end: 20080423

REACTIONS (5)
  - HYPONATRAEMIA [None]
  - HYPOTHYROIDISM [None]
  - MALIGNANT NEOPLASM PROGRESSION [None]
  - PNEUMONIA [None]
  - SOMNOLENCE [None]
